FAERS Safety Report 8017206-5 (Version None)
Quarter: 2012Q1

REPORT INFORMATION
  Report Type: 
  Country: None (occurrence: None)
  Receive Date: 20120102
  Receipt Date: 20110920
  Transmission Date: 20120608
  Serious: Yes (Other)
  Sender: FDA-Public Use
  Company Number: US-ROCHE-1001309

PATIENT
  Sex: Female
  Weight: 64.1 kg

DRUGS (3)
  1. XELODA [Suspect]
     Indication: PRODUCT USED FOR UNKNOWN INDICATION
     Dosage: 3 TABLETS IN THE MORNING
     Route: 048
     Dates: start: 20110802
  2. RADIATION [Concomitant]
  3. XELODA [Suspect]
     Dosage: 2 TABLETS AT NIGHT
     Route: 048
     Dates: start: 20110802

REACTIONS (6)
  - DIARRHOEA [None]
  - NAUSEA [None]
  - SKIN DISCOLOURATION [None]
  - PALMAR-PLANTAR ERYTHRODYSAESTHESIA SYNDROME [None]
  - PARAESTHESIA [None]
  - VULVOVAGINAL SWELLING [None]
